FAERS Safety Report 7738998-6 (Version None)
Quarter: 2011Q3

REPORT INFORMATION
  Report Type: 
  Country: None (occurrence: None)
  Receive Date: 20110909
  Receipt Date: 20110830
  Transmission Date: 20111222
  Serious: No
  Sender: FDA-Public Use
  Company Number: US-BIOGENIDEC-2011BI033563

PATIENT
  Age: 61 Year
  Sex: Female

DRUGS (5)
  1. TYSABRI [Suspect]
     Indication: MULTIPLE SCLEROSIS
     Route: 042
     Dates: start: 20110714
  2. TYSABRI [Suspect]
     Route: 042
     Dates: start: 20091002, end: 20100824
  3. TYSABRI [Suspect]
     Route: 042
  4. AVONEX [Concomitant]
     Route: 030
  5. AVONEX [Concomitant]
     Indication: MULTIPLE SCLEROSIS
     Route: 030
     Dates: start: 20021008, end: 20031008

REACTIONS (4)
  - ABASIA [None]
  - INCONTINENCE [None]
  - PYREXIA [None]
  - CHILLS [None]
